FAERS Safety Report 20926492 (Version 1)
Quarter: 2022Q2

REPORT INFORMATION
  Report Type: Spontaneous
  Country: US (occurrence: US)
  Receive Date: 20220607
  Receipt Date: 20220607
  Transmission Date: 20220720
  Serious: No
  Sender: FDA-Public Use
  Company Number: US-AMGEN-USASP2022094198

PATIENT
  Age: 71 Year
  Sex: Male
  Weight: 68.2 kg

DRUGS (1)
  1. MVASI [Suspect]
     Active Substance: BEVACIZUMAB-AWWB
     Indication: Non-small cell lung cancer
     Dosage: 1000 MILLIGRAM
     Route: 065
     Dates: start: 20220328

REACTIONS (1)
  - Hypertension [Unknown]
